FAERS Safety Report 8709058 (Version 3)
Quarter: 2012Q4

REPORT INFORMATION
  Report Type: 
  Country: JP (occurrence: JP)
  Receive Date: 20120806
  Receipt Date: 20121005
  Transmission Date: 20130627
  Serious: Yes (Disabling)
  Sender: FDA-Public Use
  Company Number: JP-ASTRAZENECA-2012SE54786

PATIENT
  Age: 58 Year
  Sex: Female
  Weight: 55 kg

DRUGS (26)
  1. SEROQUEL [Suspect]
     Indication: SCHIZOPHRENIA
     Route: 048
     Dates: start: 20100723, end: 20111104
  2. SEROQUEL [Suspect]
     Indication: SCHIZOPHRENIA
     Route: 048
     Dates: start: 20111105, end: 20111106
  3. SEROQUEL [Suspect]
     Indication: SCHIZOPHRENIA
     Route: 048
     Dates: start: 20111107, end: 20111111
  4. SEROQUEL [Suspect]
     Indication: SCHIZOPHRENIA
     Route: 048
     Dates: start: 20111111, end: 20111111
  5. SEROQUEL [Suspect]
     Indication: SCHIZOPHRENIA
     Route: 048
     Dates: start: 20111112, end: 20111201
  6. SEROQUEL [Suspect]
     Indication: SCHIZOPHRENIA
     Route: 048
     Dates: start: 20111202, end: 20120119
  7. SEROQUEL [Suspect]
     Indication: SCHIZOPHRENIA
     Route: 048
     Dates: start: 20120120, end: 20120201
  8. SEROQUEL [Suspect]
     Indication: SCHIZOPHRENIA
     Route: 048
     Dates: start: 20120202, end: 20120209
  9. SEROQUEL [Suspect]
     Indication: SCHIZOPHRENIA
     Route: 048
     Dates: start: 20120210
  10. RISPERDAL [Suspect]
     Indication: SCHIZOPHRENIA
     Route: 048
     Dates: start: 20110604, end: 20111110
  11. AKIRIDEN [Suspect]
     Indication: PROPHYLAXIS
     Route: 048
     Dates: end: 20111118
  12. KONSUBEN [Concomitant]
     Indication: CONSTIPATION
     Dates: start: 20110108
  13. REBAMIPIDE [Concomitant]
     Indication: CONSTIPATION
     Dates: start: 20100910
  14. POLYSILO [Concomitant]
     Indication: CONSTIPATION
     Dates: start: 20110910
  15. RIZMYLATE [Concomitant]
     Indication: ORTHOSTATIC HYPOTENSION
     Dates: end: 20120128
  16. METODRIN [Concomitant]
     Indication: ORTHOSTATIC HYPOTENSION
     Dates: end: 20120120
  17. FLUNITRAZEPAM [Concomitant]
     Indication: SCHIZOPHRENIA
     Dates: start: 20100703
  18. LIVALO [Concomitant]
     Indication: HYPERCHOLESTEROLAEMIA
     Dates: start: 20100801
  19. SENNOSIDE [Concomitant]
     Indication: CONSTIPATION
     Dates: start: 20091117, end: 20120105
  20. BENZALIN [Concomitant]
     Indication: SCHIZOPHRENIA
     Dates: start: 20100723
  21. HERBESSER R [Concomitant]
     Indication: MENTAL RETARDATION
     Dates: start: 20100801
  22. DAIKENTYUTO [Concomitant]
     Indication: CONSTIPATION
     Dates: start: 20100826
  23. CERCINE [Concomitant]
     Indication: SCHIZOPHRENIA
     Dates: end: 20111208
  24. MAGNESIUM OXIDE [Concomitant]
     Indication: CONSTIPATION
     Dates: end: 20120201
  25. MASBERAN [Concomitant]
  26. GASMOTIN [Concomitant]
     Indication: CONSTIPATION

REACTIONS (2)
  - Ileus paralytic [Recovered/Resolved]
  - Intentional drug misuse [Unknown]
